FAERS Safety Report 4885035-7 (Version None)
Quarter: 2006Q1

REPORT INFORMATION
  Report Type: 
  Country: None (occurrence: None)
  Receive Date: 20060119
  Receipt Date: 20051027
  Transmission Date: 20060701
  Serious: Yes (Hospitalization)
  Sender: FDA-Public Use
  Company Number: US-MERCK-0510USA09397

PATIENT
  Age: 47 Year
  Sex: Male
  Weight: 80 kg

DRUGS (3)
  1. VIOXX [Suspect]
     Indication: PAIN IN EXTREMITY
     Route: 048
     Dates: start: 20010101, end: 20030101
  2. VIOXX [Suspect]
     Route: 048
     Dates: start: 20010101, end: 20030101
  3. KEFLEX [Concomitant]
     Route: 065

REACTIONS (11)
  - ARTHROPATHY [None]
  - BACK INJURY [None]
  - BONE DISORDER [None]
  - CELLULITIS [None]
  - COUGH [None]
  - DEEP VEIN THROMBOSIS [None]
  - LACERATION [None]
  - LIMB DISCOMFORT [None]
  - PAIN IN EXTREMITY [None]
  - PULMONARY EMBOLISM [None]
  - THROMBOSIS [None]
